FAERS Safety Report 6531052-0 (Version None)
Quarter: 2010Q1

REPORT INFORMATION
  Report Type: 
  Country: None (occurrence: None)
  Receive Date: 20100108
  Receipt Date: 20091026
  Transmission Date: 20100710
  Serious: No
  Sender: FDA-Public Use
  Company Number: A0813400A

PATIENT
  Age: 64 Year
  Sex: Male

DRUGS (6)
  1. LOVAZA [Suspect]
     Dosage: 2CAP TWICE PER DAY
     Route: 048
     Dates: start: 20080101
  2. ATENOLOL [Concomitant]
  3. CRESTOR [Concomitant]
  4. ALPRAZOLAM [Concomitant]
  5. LISINOPRIL [Concomitant]
  6. ASPIRIN [Concomitant]

REACTIONS (2)
  - HAIR DISORDER [None]
  - THERAPEUTIC RESPONSE UNEXPECTED [None]
